FAERS Safety Report 23945811 (Version 1)
Quarter: 2024Q2

REPORT INFORMATION
  Report Type: Spontaneous
  Country: CN (occurrence: CN)
  Receive Date: 20240606
  Receipt Date: 20240606
  Transmission Date: 20240715
  Serious: Yes (Hospitalization)
  Sender: FDA-Public Use
  Company Number: CN-PFIZER INC-PV202400072826

PATIENT
  Age: 33 Year
  Sex: Male
  Weight: 115 kg

DRUGS (1)
  1. CYTARABINE [Suspect]
     Active Substance: CYTARABINE
     Indication: Chemotherapy
     Dosage: 2.4 G, 2X/DAY (MAINTAINING 3 HOURS CHEMOTHERAPY)
     Route: 041
     Dates: start: 20240529, end: 20240601

REACTIONS (3)
  - Pyrexia [Recovered/Resolved]
  - Chills [Recovering/Resolving]
  - Blood pressure increased [Unknown]

NARRATIVE: CASE EVENT DATE: 20240531
